FAERS Safety Report 5391471-5 (Version None)
Quarter: 2007Q3

REPORT INFORMATION
  Report Type: 
  Country: None (occurrence: None)
  Receive Date: 20070719
  Receipt Date: 20070713
  Transmission Date: 20080115
  Serious: Yes (Other)
  Sender: FDA-Public Use
  Company Number: NL-ASTRAZENECA-2007AC01290

PATIENT
  Age: 45 Year
  Sex: Male

DRUGS (4)
  1. SEROQUEL [Suspect]
     Indication: BIPOLAR DISORDER
     Route: 048
     Dates: start: 20060101
  2. SEROQUEL [Suspect]
     Route: 048
  3. LITHIUM CARBONATE [Concomitant]
  4. DEPAKOTE [Concomitant]

REACTIONS (1)
  - SLEEP APNOEA SYNDROME [None]
